FAERS Safety Report 9237162 (Version 7)
Quarter: 2013Q4

REPORT INFORMATION
  Report Type: Spontaneous
  Country: US (occurrence: US)
  Receive Date: 20130417
  Receipt Date: 20131114
  Transmission Date: 20140711
  Serious: Yes (Hospitalization, Other)
  Sender: FDA-Public Use
  Company Number: US-PFIZER INC-2013078122

PATIENT
  Age: 53 Year
  Sex: Male
  Weight: 59 kg

DRUGS (19)
  1. SUTENT [Suspect]
     Indication: PARAGANGLION NEOPLASM
     Dosage: 37.5 MG, CYCLIC (28 DAYS ON, 14 DAYS OFF)
     Route: 048
     Dates: start: 20130128
  2. VICODIN [Concomitant]
     Indication: PAIN
     Dosage: UNK, AS NEEDED
  3. NEURONTIN [Concomitant]
     Indication: PAIN
     Dosage: 50 MG, 3X/DAY
     Route: 048
  4. NEURONTIN [Concomitant]
     Dosage: 300 MG, 3X/DAY (1 CAPSULE 3 TIMES DAILY)
  5. IBUPROFEN [Concomitant]
     Indication: PAIN
     Dosage: UNK, AS NEEDED
  6. IRON [Concomitant]
     Dosage: MONTHLY INFUSION
  7. HYDROMORPHONE [Concomitant]
     Dosage: 2 MG, AS NEEDED; 1 TABLET EVERY 4 HOURS
     Route: 048
  8. KEPPRA [Concomitant]
     Dosage: 750 MG, 2X/DAY, 1 TABLET
     Route: 048
  9. POLYETHYLENE GLYCOL 3350 [Concomitant]
     Dosage: 17 G, 1X/DAY, 1 PACKET ONCE DAILY
     Route: 048
  10. PANTOPRAZOLE [Concomitant]
     Dosage: 40 MG, 1X/DAY, 1 TABLET ONCE DAILY
     Route: 048
  11. VENOFER [Concomitant]
     Dosage: 200 MG/10 ML, 200 MG INTRAVENOUSLY ONCE EVERY MONTH
     Route: 042
  12. MS CONTIN [Concomitant]
     Dosage: 30 MG EVERY 12 HOUR, 1 TABLET TWICE DAILY
     Route: 048
  13. MORPHINE SR [Concomitant]
     Dosage: 15 MG EVERY 12 HOURS, 1 TABLET TWICE DAILY
     Route: 048
  14. MORPHINE SR [Concomitant]
     Dosage: UNK, PRN
  15. ZOMETA [Concomitant]
     Dosage: UNK, MONTHLY
  16. CELEBREX [Concomitant]
     Indication: PAIN
     Dosage: UNK
  17. ZOFRAN [Concomitant]
     Indication: NAUSEA
     Dosage: UNK
  18. CYMBALTA [Concomitant]
     Dosage: UNK
  19. MIRALAX [Concomitant]
     Dosage: UNK

REACTIONS (23)
  - Sinusitis [Unknown]
  - Dehydration [Unknown]
  - Osteonecrosis of jaw [Unknown]
  - Off label use [Unknown]
  - Glossodynia [Unknown]
  - Dysgeusia [Not Recovered/Not Resolved]
  - Paraesthesia [Not Recovered/Not Resolved]
  - Dyspepsia [Unknown]
  - Nausea [Unknown]
  - Fatigue [Not Recovered/Not Resolved]
  - Dry mouth [Unknown]
  - Pain in extremity [Not Recovered/Not Resolved]
  - Back pain [Not Recovered/Not Resolved]
  - Nerve injury [Unknown]
  - Bone pain [Unknown]
  - Neuralgia [Unknown]
  - Constipation [Recovered/Resolved]
  - Decreased appetite [Unknown]
  - Arthralgia [Not Recovered/Not Resolved]
  - Pain in extremity [Not Recovered/Not Resolved]
  - Hair colour changes [Not Recovered/Not Resolved]
  - Rash macular [Unknown]
  - Diarrhoea [Unknown]
